FAERS Safety Report 14881377 (Version 1)
Quarter: 2018Q2

REPORT INFORMATION
  Report Type: Spontaneous
  Country: US (occurrence: US)
  Receive Date: 20180511
  Receipt Date: 20180511
  Transmission Date: 20180711
  Serious: Yes (Hospitalization)
  Sender: FDA-Public Use
  Company Number: US-PFIZER INC-2018193969

PATIENT
  Age: 72 Year
  Sex: Female
  Weight: 97.98 kg

DRUGS (2)
  1. LYRICA [Suspect]
     Active Substance: PREGABALIN
     Indication: HERPES ZOSTER
     Dosage: 100 MG, 3X/DAY(I TOOK IN MORNING, AFTER AND AT NIGHT)
  2. GLIPIZIDE. [Concomitant]
     Active Substance: GLIPIZIDE
     Indication: DIABETES MELLITUS
     Dosage: 5 MG, 1X/DAY(I TAKE IT IN THE MORNING)
     Route: 048

REACTIONS (1)
  - Pulmonary thrombosis [Not Recovered/Not Resolved]
